FAERS Safety Report 5507558-X (Version None)
Quarter: 2007Q4

REPORT INFORMATION
  Report Type: 
  Country: None (occurrence: None)
  Receive Date: 20071106
  Receipt Date: 20071025
  Transmission Date: 20080405
  Serious: Yes (Hospitalization)
  Sender: FDA-Public Use
  Company Number: US-ROCHE-523452

PATIENT
  Age: 57 Year
  Sex: Male
  Weight: 83 kg

DRUGS (7)
  1. PEGASYS [Suspect]
     Indication: DRUG USE FOR UNKNOWN INDICATION
     Route: 065
     Dates: start: 20070501
  2. RIBAVIRIN [Suspect]
     Indication: DRUG USE FOR UNKNOWN INDICATION
     Route: 065
  3. PROTONIX [Concomitant]
  4. LASIX [Concomitant]
  5. GLYBURIDE AND METFORMIN HCL [Concomitant]
     Dosage: 5/500 TWO TABLETS TWICE DAILY
  6. OXYCONTIN [Concomitant]
     Indication: PAIN
     Dosage: 10 MG THREE TABLETS BID PRIN
     Route: 048
  7. METHADONE HCL [Concomitant]
     Indication: BACK PAIN

REACTIONS (5)
  - ANAEMIA [None]
  - DIABETES MELLITUS INADEQUATE CONTROL [None]
  - HAEMATEMESIS [None]
  - MELAENA [None]
  - UPPER GASTROINTESTINAL HAEMORRHAGE [None]
